FAERS Safety Report 7417877-8 (Version None)
Quarter: 2011Q2

REPORT INFORMATION
  Report Type: 
  Country: None (occurrence: None)
  Receive Date: 20110404
  Receipt Date: 20110325
  Transmission Date: 20111010
  Serious: Yes (Other)
  Sender: FDA-Public Use
  Company Number: 029978

PATIENT
  Sex: Female

DRUGS (2)
  1. METHOTREXATE [Suspect]
     Dates: start: 20090101
  2. CIMZIA [Suspect]
     Dosage: (SUBCUTANEOUS)
     Route: 058
     Dates: start: 20090101

REACTIONS (1)
  - BREAST CANCER [None]
